FAERS Safety Report 23603514 (Version 3)
Quarter: 2024Q2

REPORT INFORMATION
  Report Type: Spontaneous
  Country: US (occurrence: US)
  Receive Date: 20240307
  Receipt Date: 20240412
  Transmission Date: 20240716
  Serious: Yes (Hospitalization, Other)
  Sender: FDA-Public Use
  Company Number: US-Accord-410007

PATIENT
  Age: 66 Year
  Sex: Male

DRUGS (26)
  1. CARBOPLATIN [Suspect]
     Active Substance: CARBOPLATIN
     Indication: Squamous cell carcinoma of head and neck
     Dosage: 5 AUC
     Route: 042
     Dates: start: 20240207
  2. FLUOROURACIL [Suspect]
     Active Substance: FLUOROURACIL
     Indication: Squamous cell carcinoma of head and neck
     Dosage: 1Q2W
     Route: 042
     Dates: start: 20240207, end: 20240209
  3. PEMBROLIZUMAB [Concomitant]
     Active Substance: PEMBROLIZUMAB
     Indication: Squamous cell carcinoma of head and neck
     Dosage: 1Q3W
     Route: 042
     Dates: start: 20240207
  4. MENAQUINONE 6 [Concomitant]
     Active Substance: MENAQUINONE 6
     Dates: start: 20230101
  5. ALBUTEROL SULFATE [Concomitant]
     Active Substance: ALBUTEROL SULFATE
     Dates: start: 20210101
  6. AMLODIPINE BESYLATE [Concomitant]
     Active Substance: AMLODIPINE BESYLATE
     Dates: start: 20200101
  7. HERBALS [Concomitant]
     Active Substance: HERBALS
     Dates: start: 20220101
  8. ASPIRIN [Concomitant]
     Active Substance: ASPIRIN
     Dates: start: 20200101
  9. CETIRIZINE [Concomitant]
     Active Substance: CETIRIZINE HYDROCHLORIDE
     Dates: start: 20220101
  10. MORPHINE SULFATE [Concomitant]
     Active Substance: MORPHINE SULFATE
     Dates: start: 20240110
  11. VITAMINS [Concomitant]
     Active Substance: VITAMINS
     Dates: start: 20210101
  12. OXYCODONE HYDROCHLORIDE [Concomitant]
     Active Substance: OXYCODONE HYDROCHLORIDE
     Dates: start: 20240105
  13. MIRALAX [Concomitant]
     Active Substance: POLYETHYLENE GLYCOL 3350
     Dates: start: 20240105
  14. CHOLECALCIFEROL [Concomitant]
     Active Substance: CHOLECALCIFEROL
     Dates: start: 20220101
  15. EPINEPHRINE [Concomitant]
     Active Substance: EPINEPHRINE
     Dates: start: 20230724
  16. IBUPROFEN [Concomitant]
     Active Substance: IBUPROFEN
     Dates: start: 20240112
  17. LISINOPRIL [Concomitant]
     Active Substance: LISINOPRIL
     Dates: start: 20070101, end: 20240211
  18. MAGNESIUM OXIDE [Concomitant]
     Active Substance: MAGNESIUM OXIDE
     Dates: start: 20230101
  19. METFORMIN HYDROCHLORIDE [Concomitant]
     Active Substance: METFORMIN HYDROCHLORIDE
     Dates: start: 20200101
  20. METHOCARBAMOL [Concomitant]
     Active Substance: METHOCARBAMOL
     Dates: start: 20240112
  21. CANNABIDIOL [Concomitant]
     Active Substance: CANNABIDIOL
     Dates: start: 20240207
  22. ALOXI [Concomitant]
     Active Substance: PALONOSETRON HYDROCHLORIDE
     Dates: start: 20240207
  23. FOSAPREPITANT [Concomitant]
     Active Substance: FOSAPREPITANT
     Dates: start: 20240207
  24. DECADRON [Concomitant]
     Active Substance: DEXAMETHASONE
     Dates: start: 20240207
  25. METOPROLOL TARTRATE [Concomitant]
     Active Substance: METOPROLOL TARTRATE
     Dates: start: 20230918
  26. VITAMIN D3 [Concomitant]
     Active Substance: CHOLECALCIFEROL
     Dosage: VITAMIN D3(500 IU)/K(500 MCG)/BERBERINE(90 MG)/HOPS(370 MG)
     Dates: start: 20230101

REACTIONS (2)
  - Pyrexia [Recovered/Resolved]
  - Dyspnoea [Recovered/Resolved]

NARRATIVE: CASE EVENT DATE: 20240209
